FAERS Safety Report 12085314 (Version 2)
Quarter: 2016Q1

REPORT INFORMATION
  Report Type: Spontaneous
  Country: US (occurrence: US)
  Receive Date: 20160217
  Receipt Date: 20160224
  Transmission Date: 20160526
  Serious: No
  Sender: FDA-Public Use
  Company Number: US-PFIZER INC-2016092219

PATIENT
  Age: 59 Year
  Sex: Female
  Weight: 97 kg

DRUGS (3)
  1. NEXIUM [Suspect]
     Active Substance: ESOMEPRAZOLE MAGNESIUM
     Indication: GASTROOESOPHAGEAL REFLUX DISEASE
     Dosage: 40 MG, 2X/DAY
     Route: 048
  2. SEROQUEL [Concomitant]
     Active Substance: QUETIAPINE FUMARATE
     Indication: INSOMNIA
     Dosage: 100 MG, DAILY AT BEDTIME
  3. PRISTIQ EXTENDED RELEASE [Suspect]
     Active Substance: DESVENLAFAXINE SUCCINATE
     Indication: DEPRESSION
     Dosage: 100MG ER CAPSULE, 1X/DAY
     Route: 048

REACTIONS (3)
  - Poor quality drug administered [Unknown]
  - Medication residue present [Unknown]
  - Drug ineffective [Unknown]

NARRATIVE: CASE EVENT DATE: 201602
